FAERS Safety Report 5781641-6 (Version None)
Quarter: 2008Q2

REPORT INFORMATION
  Report Type: 
  Country: None (occurrence: None)
  Receive Date: 20080623
  Receipt Date: 20080522
  Transmission Date: 20081010
  Serious: No
  Sender: FDA-Public Use
  Company Number: US-BAYER-200812698NA

PATIENT
  Age: 74 Year
  Sex: Male

DRUGS (3)
  1. LEVITRA [Suspect]
     Indication: PEYRONIE'S DISEASE
     Dosage: TOTAL DAILY DOSE: 10 MG
     Route: 048
     Dates: start: 20060101, end: 20070901
  2. FLOMAX [Concomitant]
  3. CRESTOR [Concomitant]

REACTIONS (1)
  - THERAPEUTIC RESPONSE UNEXPECTED [None]
